FAERS Safety Report 5636508-0 (Version None)
Quarter: 2008Q1

REPORT INFORMATION
  Report Type: 
  Country: None (occurrence: None)
  Receive Date: 20080219
  Receipt Date: 20080219
  Transmission Date: 20080703
  Serious: Yes (Life-Threatening, Hospitalization)
  Sender: FDA-Public Use
  Company Number: None

PATIENT
  Age: 35 Year
  Sex: Female
  Weight: 49.8957 kg

DRUGS (1)
  1. PHENTEMINE 15MG ACTIVIS [Suspect]
     Indication: WEIGHT CONTROL
     Dosage: 15MG DAILY PO
     Route: 048
     Dates: start: 20070501, end: 20080101

REACTIONS (14)
  - ABNORMAL SENSATION IN EYE [None]
  - DISORIENTATION [None]
  - DYSGEUSIA [None]
  - DYSPNOEA [None]
  - EYE OEDEMA [None]
  - HEADACHE [None]
  - IMPAIRED DRIVING ABILITY [None]
  - MALAISE [None]
  - MUSCLE SPASMS [None]
  - OEDEMA PERIPHERAL [None]
  - PAIN [None]
  - PYREXIA [None]
  - SWELLING FACE [None]
  - VISION BLURRED [None]
